FAERS Safety Report 19071318 (Version 1)
Quarter: 2021Q1

REPORT INFORMATION
  Report Type: Spontaneous
  Country: PE (occurrence: PE)
  Receive Date: 20210330
  Receipt Date: 20210330
  Transmission Date: 20210420
  Serious: Yes (Hospitalization, Other)
  Sender: FDA-Public Use
  Company Number: PE-SUN PHARMACEUTICAL INDUSTRIES LTD-2021RR-288198

PATIENT
  Age: 4 Year
  Sex: Female

DRUGS (6)
  1. IVERMECTIN. [Suspect]
     Active Substance: IVERMECTIN
     Indication: PRODUCT USED FOR UNKNOWN INDICATION
     Dosage: 1 DROP/KG/DAY
     Route: 065
  2. DEXAMETHASONE. [Concomitant]
     Active Substance: DEXAMETHASONE
     Indication: HENOCH-SCHONLEIN PURPURA
     Dosage: 0.4 MG/KG/DAY EVERY 12 HOURS
     Route: 065
  3. OMEPRAZOLE. [Suspect]
     Active Substance: OMEPRAZOLE
     Indication: PRODUCT USED FOR UNKNOWN INDICATION
     Dosage: 2 MG/KG/DAY EVERY 12 HOURS
     Route: 065
  4. CEFTRIAXONE. [Suspect]
     Active Substance: CEFTRIAXONE
     Indication: PRODUCT USED FOR UNKNOWN INDICATION
     Dosage: 80 MG/KG/DAY EVERY 12 HOURS
     Route: 065
  5. METRONIDAZOLE. [Suspect]
     Active Substance: METRONIDAZOLE
     Indication: PRODUCT USED FOR UNKNOWN INDICATION
     Dosage: 40 MG/KG/DAY EVERY 8 HOURS
     Route: 005
  6. PREDNISONE. [Concomitant]
     Active Substance: PREDNISONE
     Indication: HENOCH-SCHONLEIN PURPURA
     Dosage: 1.5 MG/KG/DAY
     Route: 065

REACTIONS (2)
  - Off label use [Unknown]
  - Condition aggravated [Unknown]
